FAERS Safety Report 4996089-1 (Version None)
Quarter: 2006Q2

REPORT INFORMATION
  Report Type: 
  Country: None (occurrence: None)
  Receive Date: 20060508
  Receipt Date: 20060208
  Transmission Date: 20061013
  Serious: Yes (Hospitalization)
  Sender: FDA-Public Use
  Company Number: US-MERCK-0602USA02589

PATIENT
  Age: 65 Year
  Sex: Female
  Weight: 64 kg

DRUGS (10)
  1. VIOXX [Suspect]
     Indication: ARTHRITIS
     Route: 048
     Dates: start: 20000224, end: 20040930
  2. ORTHO-PREFEST [Concomitant]
     Route: 065
     Dates: start: 20010720, end: 20020326
  3. HYDROCHLOROTHIAZIDE TABLETS (USP 23) [Concomitant]
     Route: 065
     Dates: start: 20021214, end: 20030720
  4. AVALIDE [Concomitant]
     Route: 065
     Dates: start: 20030801, end: 20031202
  5. AVALIDE [Concomitant]
     Route: 065
     Dates: start: 20020802, end: 20031202
  6. PRILOSEC [Concomitant]
     Route: 048
  7. FIORINAL [Concomitant]
     Route: 065
     Dates: start: 20010720, end: 20010720
  8. EVISTA [Concomitant]
     Route: 065
  9. BUTALBITAL [Concomitant]
     Route: 065
  10. LIPITOR [Concomitant]
     Route: 065
     Dates: start: 20021219, end: 20050106

REACTIONS (5)
  - HYPERLIPIDAEMIA [None]
  - HYPERTENSION [None]
  - HYPOTHYROIDISM [None]
  - MYOCARDIAL INFARCTION [None]
  - ULCER [None]
